FAERS Safety Report 5034224-X (Version None)
Quarter: 2006Q2

REPORT INFORMATION
  Report Type: 
  Country: None (occurrence: None)
  Receive Date: 20060626
  Receipt Date: 20060613
  Transmission Date: 20061013
  Serious: Yes (Congenital Anomaly)
  Sender: FDA-Public Use
  Company Number: FR-GLAXOSMITHKLINE-B0428752A

PATIENT
  Weight: 3.3 kg

DRUGS (4)
  1. BECLOMETHASONE DIPROPIONATE [Suspect]
     Indication: ASTHMA
  2. ALBUTEROL + IPRATROPIUM BROMIDE [Suspect]
     Indication: ASTHMA
  3. SINGULAIR [Suspect]
     Indication: ASTHMA
  4. THEOPHYLLINE [Suspect]

REACTIONS (4)
  - CONGENITAL HAND MALFORMATION [None]
  - CONGENITAL MUSCULOSKELETAL ANOMALY [None]
  - DRUG EXPOSURE DURING PREGNANCY [None]
  - LIMB HYPOPLASIA CONGENITAL [None]
